FAERS Safety Report 25169869 (Version 2)
Quarter: 2025Q2

REPORT INFORMATION
  Report Type: Spontaneous
  Country: ES (occurrence: ES)
  Receive Date: 20250407
  Receipt Date: 20250408
  Transmission Date: 20250717
  Serious: Yes (Hospitalization)
  Sender: RADIUS PHARM
  Company Number: ES-THERAMEX-2025000796

PATIENT
  Age: 61 Year
  Sex: Female

DRUGS (6)
  1. ABALOPARATIDE [Suspect]
     Active Substance: ABALOPARATIDE
     Indication: Osteoporosis
     Dosage: 80 MICROGRAM/DOSE, QD
     Route: 058
     Dates: start: 202502, end: 20250321
  2. AMOXICILLIN [Concomitant]
     Active Substance: AMOXICILLIN
     Indication: Helicobacter infection
     Route: 065
     Dates: start: 2024, end: 20250324
  3. CLARITHROMYCIN [Concomitant]
     Active Substance: CLARITHROMYCIN
     Indication: Helicobacter infection
     Dates: start: 2024, end: 20250324
  4. METRONIDAZOLE [Concomitant]
     Active Substance: METRONIDAZOLE
     Indication: Helicobacter infection
     Dates: start: 2024, end: 20250324
  5. ESOMEPRAZOLE [Concomitant]
     Active Substance: ESOMEPRAZOLE
     Indication: Helicobacter infection
     Dates: start: 2024, end: 20250324
  6. CIDIN [Concomitant]
     Indication: Helicobacter infection
     Route: 065
     Dates: start: 2024, end: 20250324

REACTIONS (8)
  - Cerebrovascular accident [Recovered/Resolved]
  - Dysarthria [Recovered/Resolved]
  - Mobility decreased [Recovered/Resolved]
  - Fatigue [Recovered/Resolved]
  - Asthenia [Recovered/Resolved]
  - Dizziness [Recovered/Resolved]
  - Pain in extremity [Recovered/Resolved]
  - Diarrhoea [Recovered/Resolved]

NARRATIVE: CASE EVENT DATE: 20250320
